FAERS Safety Report 16065511 (Version 2)
Quarter: 2019Q2

REPORT INFORMATION
  Report Type: Report from Study
  Country: US (occurrence: US)
  Receive Date: 20190313
  Receipt Date: 20190514
  Transmission Date: 20190711
  Serious: No
  Sender: FDA-Public Use
  Company Number: PHEH2019US010387

PATIENT
  Sex: Female

DRUGS (1)
  1. GILENYA [Suspect]
     Active Substance: FINGOLIMOD HYDROCHLORIDE
     Indication: MULTIPLE SCLEROSIS
     Dosage: 0.5 MG, QD
     Route: 048
     Dates: start: 201305

REACTIONS (6)
  - Arthropathy [Unknown]
  - Thinking abnormal [Unknown]
  - Inflammation [Unknown]
  - Temperature intolerance [Unknown]
  - Dysarthria [Unknown]
  - Eye movement disorder [Recovering/Resolving]
